FAERS Safety Report 11879992 (Version 3)
Quarter: 2016Q1

REPORT INFORMATION
  Report Type: Report from Study
  Country: US (occurrence: US)
  Receive Date: 20151230
  Receipt Date: 20160226
  Transmission Date: 20160526
  Serious: Yes (Hospitalization)
  Sender: FDA-Public Use
  Company Number: US-ABBVIE-15P-163-1526051-00

PATIENT
  Age: 64 Year
  Sex: Male
  Weight: 61.74 kg

DRUGS (12)
  1. BUDESONIDE W/FORMOTEROL [Concomitant]
     Active Substance: BUDESONIDE\FORMOTEROL
     Indication: SEASONAL ALLERGY
     Dosage: 160/90 MCG TWICE DAILY
     Route: 055
     Dates: start: 20150720
  2. OMBITASVIR/PARITAPREVIR/RITONAVIR [Suspect]
     Active Substance: OMBITASVIR\PARITAPREVIR\RITONAVIR
     Dosage: 25/150/100 MG, 1 IN 1 D
     Route: 048
     Dates: start: 20151221
  3. QUETIAPINE [Concomitant]
     Active Substance: QUETIAPINE
     Indication: DEPRESSION
     Dosage: ONCE DAILY AT BEDTIME
     Route: 048
     Dates: start: 20150527, end: 20151224
  4. ALPRAZOLAM. [Concomitant]
     Active Substance: ALPRAZOLAM
     Indication: ANXIETY
     Route: 048
     Dates: start: 20150527
  5. MULTIVITAMIN [Concomitant]
     Active Substance: VITAMINS
     Indication: ROUTINE HEALTH MAINTENANCE
     Dosage: ONE MIXED TABLET
     Route: 048
     Dates: start: 2000
  6. DASABUVIR [Suspect]
     Active Substance: DASABUVIR
     Route: 048
     Dates: start: 20151221
  7. VENLAFAXINE HCL [Concomitant]
     Active Substance: VENLAFAXINE HYDROCHLORIDE
     Indication: DEPRESSION
     Route: 048
     Dates: start: 20141211, end: 20151223
  8. CHOLECALCIFEROL [Concomitant]
     Active Substance: CHOLECALCIFEROL
     Indication: VITAMIN SUPPLEMENTATION
     Route: 048
     Dates: start: 20150720
  9. GABAPENTIN. [Concomitant]
     Active Substance: GABAPENTIN
     Indication: PHANTOM PAIN
     Route: 048
     Dates: start: 20131108
  10. OMBITASVIR/PARITAPREVIR/RITONAVIR [Suspect]
     Active Substance: OMBITASVIR\PARITAPREVIR\RITONAVIR
     Indication: CHRONIC HEPATITIS C
     Dosage: 25/150/100 MG, 1 IN 1 D
     Route: 048
     Dates: start: 20151207, end: 20151209
  11. DASABUVIR [Suspect]
     Active Substance: DASABUVIR
     Indication: CHRONIC HEPATITIS C
     Route: 048
     Dates: start: 20151207, end: 20151209
  12. ALBUTEROL. [Concomitant]
     Active Substance: ALBUTEROL
     Indication: SEASONAL ALLERGY
     Dosage: FOUR TIMES DAILY
     Route: 055
     Dates: start: 20150720

REACTIONS (2)
  - Drug interaction [Recovered/Resolved]
  - Mental status changes [Recovered/Resolved]

NARRATIVE: CASE EVENT DATE: 20151212
